FAERS Safety Report 19949675 (Version 2)
Quarter: 2021Q4

REPORT INFORMATION
  Report Type: Report from Study
  Country: BE (occurrence: BE)
  Receive Date: 20211013
  Receipt Date: 20211025
  Transmission Date: 20220303
  Serious: Yes (Hospitalization)
  Sender: FDA-Public Use
  Company Number: BE-ALNYLAM PHARMACEUTICALS, INC.-ALN-2021-002530

PATIENT

DRUGS (2)
  1. GIVLAARI [Suspect]
     Active Substance: GIVOSIRAN SODIUM
     Indication: Porphyria acute
     Dosage: 2.5 MILLIGRAM/KILOGRAM
     Route: 065
     Dates: start: 202002
  2. Human hemin [Concomitant]
     Indication: Porphyria acute

REACTIONS (4)
  - Porphyria acute [Unknown]
  - Somnolence [Recovered/Resolved]
  - Pre-existing condition improved [Unknown]
  - Divorced [Unknown]

NARRATIVE: CASE EVENT DATE: 20200201
